FAERS Safety Report 24895727 (Version 1)
Quarter: 2025Q1

REPORT INFORMATION
  Report Type: Spontaneous
  Country: GB (occurrence: GB)
  Receive Date: 20250128
  Receipt Date: 20250128
  Transmission Date: 20250408
  Serious: Yes (Other)
  Sender: JOHNSON AND JOHNSON
  Company Number: GB-MHRA-EMIS-7283-5fde9aae-a654-4aac-8fec-233cc60ca823

PATIENT
  Age: 67 Year
  Sex: Female
  Weight: 105 kg

DRUGS (1)
  1. INVOKANA [Suspect]
     Active Substance: CANAGLIFLOZIN
     Indication: Product used for unknown indication
     Dosage: ONE TO BE TAKEN DAILY PREFERABLY BEFORE BREAKFAST
     Route: 048
     Dates: start: 20241017

REACTIONS (4)
  - Confusional state [Unknown]
  - Diplopia [Unknown]
  - Vision blurred [Recovered/Resolved]
  - Headache [Unknown]

NARRATIVE: CASE EVENT DATE: 20241202
